FAERS Safety Report 6263811-6 (Version None)
Quarter: 2009Q3

REPORT INFORMATION
  Report Type: 
  Country: None (occurrence: None)
  Receive Date: 20090707
  Receipt Date: 20090707
  Transmission Date: 20100115
  Serious: Yes (Other)
  Sender: FDA-Public Use
  Company Number: None

PATIENT
  Age: 24 Year
  Sex: Female
  Weight: 58.9676 kg

DRUGS (2)
  1. SERTRALINE HCL [Suspect]
     Indication: ANXIETY
     Dosage: 50MG ONCE A DAY PO
     Route: 048
     Dates: start: 20090623, end: 20090705
  2. SERTRALINE HCL [Suspect]
     Indication: DEPRESSION
     Dosage: 50MG ONCE A DAY PO
     Route: 048
     Dates: start: 20090623, end: 20090705

REACTIONS (7)
  - ANXIETY [None]
  - CRYING [None]
  - DEPRESSION [None]
  - DRUG INEFFECTIVE [None]
  - FEELING ABNORMAL [None]
  - PRODUCT SUBSTITUTION ISSUE [None]
  - TACHYPHRENIA [None]
